FAERS Safety Report 9064743 (Version 2)
Quarter: 2013Q3

REPORT INFORMATION
  Report Type: Spontaneous
  Country: US (occurrence: US)
  Receive Date: 20130213
  Receipt Date: 20130806
  Transmission Date: 20140515
  Serious: Yes (Hospitalization)
  Sender: FDA-Public Use
  Company Number: US-BAXTER-2012BAX029261

PATIENT
  Age: 42 Year
  Sex: Male
  Weight: 85.35 kg

DRUGS (10)
  1. DIANEAL LOW CALCIUM [Suspect]
     Indication: RENAL FAILURE CHRONIC
     Route: 033
     Dates: start: 20121210, end: 20130128
  2. DIANEAL LOW CALCIUM [Suspect]
     Route: 033
  3. DIANEAL LOW CALCIUM (ULTRABAG) [Suspect]
     Indication: RENAL FAILURE CHRONIC
     Route: 033
     Dates: start: 20121210, end: 20130128
  4. DIANEAL LOW CALCIUM (ULTRABAG) [Suspect]
     Route: 033
  5. AMLODIPINE [Concomitant]
     Indication: PRODUCT USED FOR UNKNOWN INDICATION
     Dosage: 1 TAB
     Route: 048
     Dates: start: 20121210
  6. CALCITRIOL [Concomitant]
     Indication: PRODUCT USED FOR UNKNOWN INDICATION
     Dosage: 1 CAP
     Route: 048
     Dates: start: 20121210
  7. FUROSEMIDE [Concomitant]
     Indication: PRODUCT USED FOR UNKNOWN INDICATION
     Dosage: 1 TAB
     Route: 048
     Dates: start: 20121210
  8. METHYLDOPA [Concomitant]
     Indication: PRODUCT USED FOR UNKNOWN INDICATION
     Dosage: 1 TAB
     Route: 048
     Dates: start: 20121210
  9. RENA-VITE [Concomitant]
     Indication: PRODUCT USED FOR UNKNOWN INDICATION
     Dosage: 1 TAB
     Route: 048
     Dates: start: 20121210
  10. VICODIN [Concomitant]
     Indication: PAIN
     Dosage: 1 TAB
     Route: 048
     Dates: start: 20121210

REACTIONS (5)
  - Condition aggravated [Recovered/Resolved]
  - Scrotal swelling [Unknown]
  - Umbilical hernia [Recovering/Resolving]
  - Feeling abnormal [Unknown]
  - Discomfort [Unknown]
